FAERS Safety Report 23710579 (Version 1)
Quarter: 2024Q2

REPORT INFORMATION
  Report Type: Spontaneous
  Country: US (occurrence: US)
  Receive Date: 20240405
  Receipt Date: 20240405
  Transmission Date: 20240716
  Serious: No
  Sender: FDA-Public Use
  Company Number: US-MELINTA THERAPEUTICS, LLC-US-MLNT-24-00116

PATIENT
  Age: 42 Year
  Sex: Male

DRUGS (1)
  1. KIMYRSA [Suspect]
     Active Substance: ORITAVANCIN DIPHOSPHATE
     Indication: Osteomyelitis
     Dosage: 1200 MILLIGRAM
     Route: 041

REACTIONS (2)
  - Pruritus [Unknown]
  - Off label use [Unknown]
